FAERS Safety Report 8798052 (Version 2)
Quarter: 2013Q2

REPORT INFORMATION
  Report Type: Spontaneous
  Country: US (occurrence: None)
  Receive Date: 20120913
  Receipt Date: 20130521
  Transmission Date: 20140414
  Serious: Yes (Hospitalization, Other)
  Sender: FDA-Public Use
  Company Number: AUR-APL-2012-03919

PATIENT
  Age: 6 Year
  Sex: Male
  Weight: 30 kg

DRUGS (2)
  1. OLANZAPINE [Suspect]
     Indication: ATTENTION DEFICIT/HYPERACTIVITY DISORDER
     Dosage: 15 TO 20 TABLETS (5 MG), ORAL
     Route: 048
  2. OLANZAPINE [Suspect]
     Indication: BIPOLAR DISORDER
     Dosage: 15 TO 20 TABLETS (5 MG), ORAL
     Route: 048

REACTIONS (9)
  - Incorrect dose administered [None]
  - Agitation [None]
  - Sinus tachycardia [None]
  - Respiratory rate increased [None]
  - Gastrointestinal sounds abnormal [None]
  - Sedation [None]
  - Miosis [None]
  - Hallucination, visual [None]
  - Delirium [None]
